FAERS Safety Report 9044532 (Version 1)
Quarter: 2013Q1

REPORT INFORMATION
  Report Type: Report from Study
  Country: US (occurrence: US)
  Receive Date: 20130130
  Receipt Date: 20130130
  Transmission Date: 20140127
  Serious: No
  Sender: FDA-Public Use
  Company Number: US-ABBOTT-12P-163-0956579-00

PATIENT
  Sex: Male

DRUGS (12)
  1. HUMIRA 40 MG/0.8 ML PEN [Suspect]
     Indication: RHEUMATOID ARTHRITIS
     Dates: start: 20120224
  2. PREDNISONE [Concomitant]
     Indication: RHEUMATOID ARTHRITIS
  3. COLLAGENASE SANTYL [Concomitant]
     Indication: PRODUCT USED FOR UNKNOWN INDICATION
  4. NORVASC [Concomitant]
     Indication: HYPERTENSION
  5. ECOTRIN [Concomitant]
     Indication: PRODUCT USED FOR UNKNOWN INDICATION
  6. GABAPENTIN [Concomitant]
     Indication: PRODUCT USED FOR UNKNOWN INDICATION
  7. METOPROLOL [Concomitant]
     Indication: HYPERTENSION
  8. ALPRAZOLAM [Concomitant]
     Indication: ANXIETY
  9. HCTZ [Concomitant]
     Indication: FLUID RETENTION
  10. ZETIA [Concomitant]
     Indication: BLOOD CHOLESTEROL INCREASED
  11. HYDROCODONE [Concomitant]
     Indication: PAIN
  12. RAPAFLO [Concomitant]
     Indication: PROSTATOMEGALY

REACTIONS (1)
  - Tooth infection [Recovered/Resolved]
